FAERS Safety Report 8876706 (Version 1)
Quarter: 2012Q4

REPORT INFORMATION
  Report Type: Report from Study
  Country: JP (occurrence: JP)
  Receive Date: 20121023
  Receipt Date: 20121023
  Transmission Date: 20130627
  Serious: Yes (Death)
  Sender: FDA-Public Use
  Company Number: JP-MERCK-2009SP009792

PATIENT
  Age: 39 Year
  Sex: Female
  Weight: 40 kg

DRUGS (32)
  1. TEMOZOLOMIDE [Suspect]
     Indication: ANAPLASTIC ASTROCYTOMA
     Dosage: 75 mg/m2, QD
     Route: 048
     Dates: start: 20061102, end: 20061122
  2. TEMOZOLOMIDE [Suspect]
     Dosage: 75 mg/m2, QD
     Route: 048
     Dates: start: 20061130, end: 20061215
  3. TEMOZOLOMIDE [Suspect]
     Dosage: 150 mg/m2, QD
     Route: 048
     Dates: start: 20070111, end: 20070115
  4. TEMOZOLOMIDE [Suspect]
     Dosage: 200 mg/m2, QD
     Route: 048
     Dates: start: 20070208, end: 20070212
  5. TEMOZOLOMIDE [Suspect]
     Dosage: 200 mg/m2, QD
     Route: 048
     Dates: start: 20070308, end: 20070312
  6. TEMOZOLOMIDE [Suspect]
     Dosage: 200 mg/m2, QD
     Route: 048
     Dates: start: 20070404, end: 20070408
  7. TEMOZOLOMIDE [Suspect]
     Dosage: 150 mg/m2, QD
     Route: 048
     Dates: start: 20070503, end: 20070507
  8. TEMOZOLOMIDE [Suspect]
     Dosage: 100 mg/m2, QD
     Route: 048
     Dates: start: 20070530, end: 20070603
  9. TEMOZOLOMIDE [Suspect]
     Dosage: 100 mg/m2, QD
     Route: 048
     Dates: start: 20070626, end: 20070630
  10. TEMOZOLOMIDE [Suspect]
     Dosage: 100 mg/m2, QD
     Route: 048
     Dates: start: 20070726, end: 20070730
  11. TEMOZOLOMIDE [Suspect]
     Dosage: 100 mg/m2, QD
     Route: 048
     Dates: start: 20070823, end: 20070827
  12. TEMOZOLOMIDE [Suspect]
     Dosage: 100 mg/m2, QD
     Route: 048
     Dates: start: 20070920, end: 20070924
  13. TEMOZOLOMIDE [Suspect]
     Dosage: 100 mg/m2, QD
     Route: 048
     Dates: start: 20071018, end: 20071022
  14. TEMOZOLOMIDE [Suspect]
     Dosage: 100 mg/m2, QD
     Route: 048
     Dates: start: 20071115, end: 20071119
  15. TEMOZOLOMIDE [Suspect]
     Dosage: 100 mg/m2, QD
     Route: 048
     Dates: start: 20071213, end: 20071217
  16. TEMOZOLOMIDE [Suspect]
     Dosage: 100 mg/m2, QD
     Route: 048
     Dates: start: 20080109, end: 20080113
  17. TEMOZOLOMIDE [Suspect]
     Dosage: 100 mg/m2, QD
     Route: 048
     Dates: start: 20080207, end: 20080211
  18. TEMOZOLOMIDE [Suspect]
     Dosage: 100 mg/m2, QD
     Route: 048
     Dates: start: 20080306, end: 20080310
  19. TEMOZOLOMIDE [Suspect]
     Dosage: 100 mg/m2, QD
     Route: 048
     Dates: start: 20080403, end: 20080407
  20. TEMOZOLOMIDE [Suspect]
     Dosage: 100 mg/m2, QD
     Route: 048
     Dates: start: 20080501, end: 20080504
  21. TEMOZOLOMIDE [Suspect]
     Dosage: 100 mg/m2, QD
     Route: 048
     Dates: start: 20080529, end: 20080602
  22. TEMOZOLOMIDE [Suspect]
     Dosage: 100 mg/m2, QD
     Route: 048
     Dates: start: 20080626, end: 20080630
  23. TEMOZOLOMIDE [Suspect]
     Dosage: 100 mg/m2, QD
     Route: 048
     Dates: start: 20080724, end: 20080728
  24. TEMOZOLOMIDE [Suspect]
     Dosage: 100 mg/m2, QD
     Route: 048
     Dates: start: 20080821, end: 20080825
  25. TEMOZOLOMIDE [Suspect]
     Dosage: 100 mg/m2, QD
     Route: 048
     Dates: start: 20080918, end: 20080922
  26. TEMOZOLOMIDE [Suspect]
     Dosage: 100 mg/m2, QD
     Route: 048
     Dates: start: 20081016, end: 20081020
  27. TEMOZOLOMIDE [Suspect]
     Dosage: 100 mg/m2, QD
     Route: 048
     Dates: start: 20081016, end: 20081020
  28. ZOFRAN [Concomitant]
     Indication: PROPHYLAXIS
     Route: 048
     Dates: start: 20061021
  29. SOLANAX [Concomitant]
     Indication: PROPHYLAXIS
     Dosage: UNK
     Route: 048
     Dates: start: 20061021, end: 20061104
  30. PAXIL [Concomitant]
     Indication: PROPHYLAXIS
     Dosage: UNK
     Route: 048
     Dates: start: 20061021, end: 20061104
  31. NELBON [Concomitant]
     Indication: PROPHYLAXIS
     Route: 048
     Dates: start: 20070110
  32. MYSLEE [Concomitant]
     Indication: PROPHYLAXIS
     Dosage: UNK
     Route: 048
     Dates: start: 20061027, end: 20070112

REACTIONS (12)
  - Disease progression [Fatal]
  - Neutrophil count decreased [Recovered/Resolved]
  - Thrombocytopenia [Recovered/Resolved]
  - Leukopenia [Recovered/Resolved]
  - Gastritis [Recovering/Resolving]
  - Constipation [Recovering/Resolving]
  - Neutropenia [Recovered/Resolved]
  - Leukopenia [Recovering/Resolving]
  - White blood cell count decreased [Recovering/Resolving]
  - Neutrophil count decreased [Recovered/Resolved]
  - Platelet count decreased [Recovering/Resolving]
  - Leukopenia [Recovered/Resolved]
